FAERS Safety Report 4943297-1 (Version None)
Quarter: 2006Q1

REPORT INFORMATION
  Report Type: 
  Country: None (occurrence: None)
  Receive Date: 20060314
  Receipt Date: 20060303
  Transmission Date: 20060701
  Serious: Yes (Other)
  Sender: FDA-Public Use
  Company Number: DE-ROCHE-438885

PATIENT
  Sex: Male

DRUGS (7)
  1. UNAT [Suspect]
     Route: 048
  2. FUROSEMIDE [Concomitant]
  3. ACE-HEMMER [Concomitant]
  4. UNCLASSIFIED DRUG [Concomitant]
     Dosage: REPORTED AS AT1 HEMMER, NOS.
  5. BETA BLOCKER NOS [Concomitant]
  6. SPIRONOLACTONE [Concomitant]
  7. ASPIRIN [Concomitant]

REACTIONS (1)
  - PULMONARY OEDEMA [None]
